FAERS Safety Report 24088368 (Version 1)
Quarter: 2024Q3

REPORT INFORMATION
  Report Type: Spontaneous
  Country: PT (occurrence: PT)
  Receive Date: 20240715
  Receipt Date: 20240715
  Transmission Date: 20241016
  Serious: Yes (Other)
  Sender: REGENERON
  Company Number: None

PATIENT
  Age: 58 Year
  Sex: Male

DRUGS (2)
  1. EYLEA [Suspect]
     Active Substance: AFLIBERCEPT
     Indication: Diabetic retinopathy
     Dosage: RIGHT EYE, SOLUTION FOR INJECTION, 40 MG/ML
     Route: 031
     Dates: start: 202404, end: 202404
  2. EYLEA [Suspect]
     Active Substance: AFLIBERCEPT
     Indication: Macular oedema
     Dosage: LEFT EYE, SOLUTION FOR INJECTION, 40 MG/ML
     Route: 031
     Dates: start: 20240620, end: 20240620

REACTIONS (4)
  - Face oedema [Unknown]
  - Injection site foreign body sensation in eye [Unknown]
  - Vision blurred [Unknown]
  - Periorbital oedema [Unknown]

NARRATIVE: CASE EVENT DATE: 20240620
